FAERS Safety Report 8427005-8 (Version None)
Quarter: 2012Q2

REPORT INFORMATION
  Report Type: 
  Country: None (occurrence: None)
  Receive Date: 20120611
  Receipt Date: 20120607
  Transmission Date: 20120825
  Serious: Yes (Hospitalization, Other)
  Sender: FDA-Public Use
  Company Number: JP-ROCHE-1073648

PATIENT
  Sex: Male
  Weight: 54.7 kg

DRUGS (5)
  1. CYCLOPHOSPHAMIDE [Suspect]
     Indication: B-CELL LYMPHOMA
     Dosage: LAST DOSE PRIOR SAE 16/MAY/2012, DOSE OF LAST CYCLOPHOSPHAMIDE 1155MG
     Route: 042
  2. PREDNISONE [Suspect]
     Indication: B-CELL LYMPHOMA
     Dosage: LAST DOSE PRIOR SAE 20/MAY/2012, DOSE OF LAST PREDNISONE: 100MG
     Route: 065
  3. MABTHERA [Suspect]
     Indication: B-CELL LYMPHOMA
     Dosage: LAST DOSE PRIOR SAE 16/MAY/2012, VOLUME OF LAST DOSE 551.25ML
     Route: 042
     Dates: start: 20120516
  4. DOXORUBICIN HCL [Suspect]
     Indication: B-CELL LYMPHOMA
     Dosage: LAST DOSE PRIOR SAE 16/MAY/2012,DOSE OF LAST DOXORUBICIN 77MG
     Route: 042
  5. VINCRISTINE [Suspect]
     Indication: B-CELL LYMPHOMA
     Dosage: LAST DOSE PRIOR SAE 16/MAY/2012, DOSE OF LAST VINCRISTINE 2MG
     Route: 042

REACTIONS (1)
  - GASTRIC HAEMORRHAGE [None]
